FAERS Safety Report 14978110 (Version 1)
Quarter: 2018Q2

REPORT INFORMATION
  Report Type: Spontaneous
  Country: PT (occurrence: PT)
  Receive Date: 20180606
  Receipt Date: 20180606
  Transmission Date: 20180711
  Serious: Yes (Other)
  Sender: FDA-Public Use
  Company Number: PT-LUPIN PHARMACEUTICALS INC.-2018-04191

PATIENT
  Age: 15 Year
  Sex: Male
  Weight: 49 kg

DRUGS (7)
  1. BUPIVACAINE. [Concomitant]
     Active Substance: BUPIVACAINE
     Indication: SPINAL ANAESTHESIA
     Dosage: 7.5 MG, UNK
     Route: 065
  2. PROPOFOL. [Concomitant]
     Active Substance: PROPOFOL
     Indication: GENERAL ANAESTHESIA
     Dosage: UNK
     Route: 042
  3. FENTANYL. [Concomitant]
     Active Substance: FENTANYL
     Indication: GENERAL ANAESTHESIA
     Dosage: UNK
     Route: 042
  4. ROCURONIUM [Concomitant]
     Active Substance: ROCURONIUM BROMIDE
     Indication: GENERAL ANAESTHESIA
     Dosage: UNK
     Route: 042
  5. CEFAZOLIN [Concomitant]
     Active Substance: CEFAZOLIN
     Indication: PRODUCT USED FOR UNKNOWN INDICATION
     Dosage: 1960 MG, UNK
     Route: 042
  6. MORPHINE [Suspect]
     Active Substance: MORPHINE
     Indication: SPINAL ANAESTHESIA
     Dosage: 0.200 MG, UNK (0.4 MCG/KG)
     Route: 037
  7. SEVOFLURANE. [Concomitant]
     Active Substance: SEVOFLURANE
     Indication: GENERAL ANAESTHESIA
     Dosage: UNK
     Route: 042

REACTIONS (5)
  - Hyperglycaemia [Recovered/Resolved]
  - Hyperhidrosis [Recovered/Resolved]
  - Nausea [Recovered/Resolved]
  - Feeling hot [Recovered/Resolved]
  - Hypothermia [Recovered/Resolved]
